FAERS Safety Report 4847682-8 (Version None)
Quarter: 2005Q4

REPORT INFORMATION
  Report Type: 
  Country: None (occurrence: None)
  Receive Date: 20051205
  Receipt Date: 20051108
  Transmission Date: 20060501
  Serious: Yes (Other)
  Sender: FDA-Public Use
  Company Number: 2005BH002171

PATIENT
  Age: 67 Year
  Sex: Female
  Weight: 47.7 kg

DRUGS (8)
  1. HUMAN ALBUMIN GRIFOLS 20% [Suspect]
     Dates: start: 20020522, end: 20021217
  2. HUMAN ALBUMIN GRIFOLS 20% [Suspect]
  3. HUMAN ALBUMIN GRIFOLS 20% [Suspect]
  4. HUMAN ALBUMIN GRIFOLS 20% [Suspect]
  5. HUMAN ALBUMIN GRIFOLS 20% [Suspect]
  6. ANTTHROMBIN III (ANTITHROMBIN III) [Suspect]
     Dates: start: 20020101, end: 20020101
  7. RED BLOOD CELLS [Suspect]
     Dosage: 48 DOSE;
     Dates: start: 20020519, end: 20050716
  8. PLASMA [Suspect]
     Dosage: 29 DOSE;
     Dates: start: 20020519, end: 20050716

REACTIONS (1)
  - HEPATITIS C [None]
